FAERS Safety Report 9027473 (Version 2)
Quarter: 2013Q3

REPORT INFORMATION
  Report Type: Spontaneous
  Country: US (occurrence: US)
  Receive Date: 20130124
  Receipt Date: 20130703
  Transmission Date: 20140515
  Serious: Yes (Hospitalization)
  Sender: FDA-Public Use
  Company Number: US-BIOGENIDEC-2013BI005428

PATIENT
  Age: 47 Year
  Sex: Female

DRUGS (3)
  1. AVONEX [Suspect]
     Indication: MULTIPLE SCLEROSIS
     Route: 030
     Dates: start: 20100108, end: 20120201
  2. AVONEX [Suspect]
     Indication: MULTIPLE SCLEROSIS
     Route: 030
     Dates: end: 20130116
  3. GILENYA [Concomitant]

REACTIONS (5)
  - Acute myocardial infarction [Recovered/Resolved]
  - Hypoxia [Unknown]
  - Presyncope [Unknown]
  - Stress [Unknown]
  - Amnesia [Not Recovered/Not Resolved]
